FAERS Safety Report 11485073 (Version 1)
Quarter: 2015Q3

REPORT INFORMATION
  Report Type: Spontaneous
  Country: US (occurrence: US)
  Receive Date: 20150903
  Receipt Date: 20150903
  Transmission Date: 20151125
  Serious: No
  Sender: FDA-Public Use
  Company Number: US-ELI_LILLY_AND_COMPANY-US201208000937

PATIENT
  Sex: Female

DRUGS (3)
  1. TAMBOCOR [Concomitant]
     Active Substance: FLECAINIDE ACETATE
     Indication: SLEEP DISORDER
  2. FENTANYL. [Concomitant]
     Active Substance: FENTANYL
  3. CYMBALTA [Suspect]
     Active Substance: DULOXETINE HYDROCHLORIDE
     Indication: FIBROMYALGIA
     Dosage: 60 MG, QD

REACTIONS (18)
  - Fall [Unknown]
  - Weight decreased [Unknown]
  - Hyperhidrosis [Unknown]
  - Nightmare [Unknown]
  - Retching [Unknown]
  - Dizziness postural [Unknown]
  - Presyncope [Unknown]
  - Hot flush [Unknown]
  - Drug withdrawal syndrome [Unknown]
  - Labile blood pressure [Unknown]
  - Decreased appetite [Unknown]
  - Amnesia [Unknown]
  - Head injury [Unknown]
  - Malaise [Unknown]
  - Insomnia [Unknown]
  - Fatigue [Unknown]
  - Nausea [Unknown]
  - Headache [Unknown]
